FAERS Safety Report 14433731 (Version 1)
Quarter: 2018Q1

REPORT INFORMATION
  Report Type: Spontaneous
  Country: US (occurrence: US)
  Receive Date: 20180124
  Receipt Date: 20180124
  Transmission Date: 20180509
  Serious: No
  Sender: FDA-Public Use
  Company Number: US-INCYTE CORPORATION-2018IN000323

PATIENT

DRUGS (1)
  1. JAKAFI [Suspect]
     Active Substance: RUXOLITINIB
     Indication: ESSENTIAL THROMBOCYTHAEMIA
     Dosage: 15 MG, BID
     Route: 048

REACTIONS (4)
  - Incorrect dose administered [Unknown]
  - Drug dose omission [Unknown]
  - Off label use [Unknown]
  - Platelet count increased [Unknown]

NARRATIVE: CASE EVENT DATE: 20180106
